FAERS Safety Report 20752290 (Version 2)
Quarter: 2022Q2

REPORT INFORMATION
  Report Type: Report from Study
  Country: CN (occurrence: None)
  Receive Date: 20220426
  Receipt Date: 20220629
  Transmission Date: 20220721
  Serious: Yes (Hospitalization)
  Sender: FDA-Public Use
  Company Number: CN-ROCHE-3072722

PATIENT
  Age: 75 Year
  Sex: Male
  Weight: 63.5 kg

DRUGS (10)
  1. ATEZOLIZUMAB [Suspect]
     Active Substance: ATEZOLIZUMAB
     Indication: Non-small cell lung cancer
     Dosage: DATE OF MOST RECENT DOSE OF BLINDED ATEZOLIZUMAB PRIOR TO AE 14/JAN/2022?DATE OF MOST RECENT DOSE OF
     Route: 042
     Dates: start: 20201111
  2. BEVACIZUMAB [Suspect]
     Active Substance: BEVACIZUMAB
     Indication: Non-small cell lung cancer
     Dosage: DATE OF MOST RECENT DOSE OF BEVACIZUMAB (1000 MG) PRIOR TO AE AND SAE 24/DEC/2021
     Route: 042
     Dates: start: 20201111
  3. CARBOPLATIN [Suspect]
     Active Substance: CARBOPLATIN
     Indication: Non-small cell lung cancer
     Dosage: DATE OF MOST RECENT DOSE OF CARBOPLATIN (1200 MG) PRIOR TO AE AND SAE: 19/JAN/2021
     Route: 042
     Dates: start: 20201111
  4. PEMETREXED [Suspect]
     Active Substance: PEMETREXED
     Indication: Non-small cell lung cancer
     Dosage: DATE OF MOST RECENT DOSE OF PEMETREXED (750 MG) PRIOR TO AE: 14/JAN/2022?DATE OF MOST RECENT DOSE OF
     Route: 042
     Dates: start: 20201111
  5. OLMESARTAN MEDOXOMIL [Concomitant]
     Active Substance: OLMESARTAN MEDOXOMIL
     Indication: Proteinuria
     Dates: start: 20210708
  6. PHOSPHOLIPID [Concomitant]
     Active Substance: PHOSPHOLIPID
     Dates: start: 20220113, end: 20220113
  7. PHOSPHOLIPID [Concomitant]
     Active Substance: PHOSPHOLIPID
     Dates: start: 20220209, end: 20220209
  8. DEXAMETHASONE ACETATE [Concomitant]
     Active Substance: DEXAMETHASONE ACETATE
     Route: 048
     Dates: start: 20220115, end: 20220117
  9. OMEPRAZOLE [Concomitant]
     Active Substance: OMEPRAZOLE
     Route: 048
     Dates: start: 20220115, end: 20220117
  10. FOLIC ACID [Concomitant]
     Active Substance: FOLIC ACID
     Dates: start: 20220113, end: 20220119

REACTIONS (1)
  - Cellulitis [Not Recovered/Not Resolved]

NARRATIVE: CASE EVENT DATE: 20220407
